FAERS Safety Report 5621578-6 (Version None)
Quarter: 2008Q1

REPORT INFORMATION
  Report Type: 
  Country: None (occurrence: None)
  Receive Date: 20080129
  Receipt Date: 20080114
  Transmission Date: 20080703
  Serious: Yes (Death)
  Sender: FDA-Public Use
  Company Number: B0503105A

PATIENT
  Age: 34 Year
  Sex: Male

DRUGS (5)
  1. BUPROPION HYDROCHLORIDE [Suspect]
     Dosage: ORAL
     Route: 048
  2. AMPHETAMINE (FORMULATION UNKNOWN) (AMPHETAMINE) [Suspect]
     Dosage: ORAL
     Route: 048
  3. DEXTROPROP. + PARACETAMOL (FORMULATION UNKNOWN) (PROPOXYPHENE + ACETAM [Suspect]
     Dosage: ORAL
     Route: 048
  4. BENZODIAZEPINES (FORMULATION UNKNOWN) (BENZODIAZEPINES) [Suspect]
     Dosage: ORAL
     Route: 048
  5. ETHANOL (FORMULATION UNKNOWN) (ALCOHOL) [Suspect]
     Dosage: ORAL
     Route: 048

REACTIONS (3)
  - CARDIAC ARREST [None]
  - COMPLETED SUICIDE [None]
  - UNRESPONSIVE TO STIMULI [None]
